FAERS Safety Report 22199346 (Version 1)
Quarter: 2023Q2

REPORT INFORMATION
  Report Type: Spontaneous
  Country: GB (occurrence: GB)
  Receive Date: 20230411
  Receipt Date: 20230411
  Transmission Date: 20230722
  Serious: No
  Sender: FDA-Public Use
  Company Number: None

PATIENT

DRUGS (4)
  1. QUETIAPINE FUMARATE [Suspect]
     Active Substance: QUETIAPINE FUMARATE
     Indication: Psychiatric disorder prophylaxis
     Dosage: 300 MILLIGRAM
     Route: 065
     Dates: start: 202107
  2. QUETIAPINE FUMARATE [Suspect]
     Active Substance: QUETIAPINE FUMARATE
     Dosage: 250 MILLIGRAM
     Route: 065
     Dates: start: 202112
  3. QUETIAPINE FUMARATE [Suspect]
     Active Substance: QUETIAPINE FUMARATE
     Dosage: 150 MILLIGRAM
     Route: 065
     Dates: start: 20220210
  4. QUETIAPINE FUMARATE [Suspect]
     Active Substance: QUETIAPINE FUMARATE
     Dosage: 200 MILLIGRAM
     Route: 065

REACTIONS (8)
  - Psoriasis [Not Recovered/Not Resolved]
  - Glucose tolerance impaired [Not Recovered/Not Resolved]
  - Eczema [Not Recovered/Not Resolved]
  - Limb injury [Not Recovered/Not Resolved]
  - Intertrigo [Not Recovered/Not Resolved]
  - Stress [Not Recovered/Not Resolved]
  - Toothache [Not Recovered/Not Resolved]
  - Facial pain [Not Recovered/Not Resolved]

NARRATIVE: CASE EVENT DATE: 20211201
